FAERS Safety Report 23932553 (Version 1)
Quarter: 2024Q2

REPORT INFORMATION
  Report Type: Spontaneous
  Country: FR (occurrence: FR)
  Receive Date: 20240603
  Receipt Date: 20240603
  Transmission Date: 20240716
  Serious: Yes (Other)
  Sender: FDA-Public Use
  Company Number: None

PATIENT
  Age: 16 Year
  Sex: Male
  Weight: 80 kg

DRUGS (4)
  1. VENLAFAXINE [Suspect]
     Active Substance: VENLAFAXINE HYDROCHLORIDE
     Indication: Poisoning deliberate
     Dosage: 3 CP, VENLAFAXINE TEVA LP
     Route: 048
     Dates: start: 20240408
  2. PRAZEPAM [Suspect]
     Active Substance: PRAZEPAM
     Indication: Poisoning deliberate
     Dosage: 8 CP
     Route: 048
     Dates: start: 20240408
  3. ACETAMINOPHEN\CODEINE PHOSPHATE [Suspect]
     Active Substance: ACETAMINOPHEN\CODEINE PHOSPHATE
     Indication: Poisoning deliberate
     Dosage: 1 PLATE OF 500/30, 500 MG/30 MG, TABLET
     Route: 048
     Dates: start: 20240408
  4. MIANSERIN HYDROCHLORIDE [Suspect]
     Active Substance: MIANSERIN HYDROCHLORIDE
     Indication: Poisoning deliberate
     Dosage: 3 CP, MIANSERINE ZENTIVA
     Route: 048
     Dates: start: 20240408

REACTIONS (3)
  - Poisoning deliberate [Recovered/Resolved]
  - Miosis [Recovered/Resolved]
  - Sinus tachycardia [Recovered/Resolved]

NARRATIVE: CASE EVENT DATE: 20240408
